FAERS Safety Report 20847276 (Version 2)
Quarter: 2022Q2

REPORT INFORMATION
  Report Type: Spontaneous
  Country: CA (occurrence: CA)
  Receive Date: 20220519
  Receipt Date: 20220525
  Transmission Date: 20220720
  Serious: Yes (Other)
  Sender: FDA-Public Use
  Company Number: CA-ENDO PHARMACEUTICALS INC-2022-003124

PATIENT
  Age: 5 Decade
  Sex: Male

DRUGS (2)
  1. AVEED [Suspect]
     Active Substance: TESTOSTERONE UNDECANOATE
     Indication: Muscle building therapy
     Dosage: UNK UNKNOWN, UNKNOWN (SUSPENDED IN AN OIL-BASED SOLUTION OF UNKNOWN ORIGIN)
     Route: 030
  2. SYMBICORT [Concomitant]
     Active Substance: BUDESONIDE\FORMOTEROL FUMARATE DIHYDRATE
     Indication: Asthma
     Dosage: UNK UNKNOWN, UNKNOWN
     Route: 065

REACTIONS (2)
  - Cyst [Not Recovered/Not Resolved]
  - Drug abuse [Recovered/Resolved]
